FAERS Safety Report 17833673 (Version 1)
Quarter: 2020Q2

REPORT INFORMATION
  Report Type: Spontaneous
  Country: US (occurrence: US)
  Receive Date: 20200527
  Receipt Date: 20200527
  Transmission Date: 20200714
  Serious: Yes (Hospitalization)
  Sender: FDA-Public Use
  Company Number: None

PATIENT
  Age: 69 Year
  Sex: Female
  Weight: 95.85 kg

DRUGS (20)
  1. LIALDA [Concomitant]
     Active Substance: MESALAMINE
  2. DEXAMETHASONE. [Concomitant]
     Active Substance: DEXAMETHASONE
  3. CALCIUM + VITAMIN D [Concomitant]
     Active Substance: CALCIUM\VITAMIN D
  4. VITAMIN C [Concomitant]
     Active Substance: ASCORBIC ACID
  5. ZANTAC [Concomitant]
     Active Substance: RANITIDINE HYDROCHLORIDE
  6. SPIRIVA [Concomitant]
     Active Substance: TIOTROPIUM BROMIDE MONOHYDRATE
  7. MICAFUNGIN. [Concomitant]
     Active Substance: MICAFUNGIN SODIUM
  8. VITAMIN D [Concomitant]
     Active Substance: VITAMIN D NOS
  9. RECLAST [Concomitant]
     Active Substance: ZOLEDRONIC ACID
  10. CANASA [Concomitant]
     Active Substance: MESALAMINE
  11. SIMVASTATIN. [Concomitant]
     Active Substance: SIMVASTATIN
  12. MIRAPEX [Concomitant]
     Active Substance: PRAMIPEXOLE DIHYDROCHLORIDE
  13. APRISO [Concomitant]
     Active Substance: MESALAMINE
  14. VITAMIN B1 [Concomitant]
     Active Substance: THIAMINE HYDROCHLORIDE
  15. PREDNISONE. [Concomitant]
     Active Substance: PREDNISONE
  16. EVEROLIMUS. [Suspect]
     Active Substance: EVEROLIMUS
     Indication: BREAST CANCER
     Route: 048
     Dates: start: 20200207
  17. FLOVENT [Concomitant]
     Active Substance: FLUTICASONE PROPIONATE
  18. DILTIAZEM. [Concomitant]
     Active Substance: DILTIAZEM
  19. IVIG [Concomitant]
     Active Substance: HUMAN IMMUNOGLOBULIN G
  20. EXEMESTANE. [Concomitant]
     Active Substance: EXEMESTANE

REACTIONS (1)
  - Pneumonia [None]
